FAERS Safety Report 21248224 (Version 4)
Quarter: 2022Q4

REPORT INFORMATION
  Report Type: Report from Study
  Country: US (occurrence: US)
  Receive Date: 20220824
  Receipt Date: 20221119
  Transmission Date: 20230113
  Serious: No
  Sender: FDA-Public Use
  Company Number: US-NOVARTISTESTPH-NVSC2022US186692

PATIENT
  Sex: Female

DRUGS (2)
  1. ENTRESTO [Suspect]
     Active Substance: SACUBITRIL\VALSARTAN
     Indication: Product used for unknown indication
     Dosage: 1 DOSAGE FORM
     Route: 048
     Dates: start: 202208
  2. UNSPECIFIED INGREDIENT [Concomitant]
     Active Substance: UNSPECIFIED INGREDIENT
     Indication: Product used for unknown indication
     Dosage: UNK, IF NEEDED
     Route: 065

REACTIONS (7)
  - Renal pain [Unknown]
  - Neck pain [Unknown]
  - Arthralgia [Unknown]
  - Hypophagia [Unknown]
  - Asthenia [Unknown]
  - Feeling abnormal [Unknown]
  - Product dose omission issue [Unknown]
